FAERS Safety Report 24811597 (Version 2)
Quarter: 2025Q1

REPORT INFORMATION
  Report Type: Spontaneous
  Country: US (occurrence: US)
  Receive Date: 20250106
  Receipt Date: 20250118
  Transmission Date: 20250408
  Serious: Yes (Hospitalization)
  Sender: TEVA
  Company Number: US-TEVA-VS-3283137

PATIENT
  Age: 36 Year
  Sex: Female

DRUGS (8)
  1. ETHAMBUTOL [Interacting]
     Active Substance: ETHAMBUTOL HYDROCHLORIDE
     Indication: Disseminated mycobacterium avium complex infection
     Route: 065
  2. RIFABUTIN [Interacting]
     Active Substance: RIFABUTIN
     Indication: Disseminated mycobacterium avium complex infection
     Route: 065
  3. COBICISTAT\DARUNAVIR ETHANOLATE [Interacting]
     Active Substance: COBICISTAT\DARUNAVIR ETHANOLATE
     Indication: HIV infection
     Route: 065
  4. MOXIFLOXACIN [Interacting]
     Active Substance: MOXIFLOXACIN
     Indication: Disseminated mycobacterium avium complex infection
     Route: 065
  5. EMTRICITABINE [Interacting]
     Active Substance: EMTRICITABINE
     Indication: HIV infection
     Route: 065
  6. FOSTEMSAVIR [Interacting]
     Active Substance: FOSTEMSAVIR
     Indication: HIV infection
     Route: 065
  7. TENOFOVIR ALAFENAMIDE [Interacting]
     Active Substance: TENOFOVIR ALAFENAMIDE
     Indication: HIV infection
     Route: 065
  8. AZITHROMYCIN [Concomitant]
     Active Substance: AZITHROMYCIN
     Indication: Disseminated mycobacterium avium complex infection
     Route: 065

REACTIONS (2)
  - Drug interaction [Unknown]
  - Product administration interrupted [Unknown]
